FAERS Safety Report 18731811 (Version 1)
Quarter: 2021Q1

REPORT INFORMATION
  Report Type: Report from Study
  Country: US (occurrence: US)
  Receive Date: 20210112
  Receipt Date: 20210112
  Transmission Date: 20210419
  Serious: Yes (Other)
  Sender: FDA-Public Use
  Company Number: US-BAYER-2020-284779

PATIENT
  Age: 66 Year
  Sex: Female
  Weight: 65.31 kg

DRUGS (5)
  1. NEXAVAR [Suspect]
     Active Substance: SORAFENIB
     Indication: THYROID CANCER
     Dosage: 400 MG DAILY FOR 1 DAY
     Route: 048
  2. NIFEDIPINE. [Concomitant]
     Active Substance: NIFEDIPINE
     Dosage: 10 MG, UNK
  3. LENVIMA [Suspect]
     Active Substance: LENVATINIB
     Indication: THYROID CANCER
     Dosage: UNK
     Dates: start: 20201218, end: 20210101
  4. NEXAVAR [Suspect]
     Active Substance: SORAFENIB
     Indication: THYROID CANCER
     Dosage: 200 MG DAILY FOR 2 DAYS 400 MG DAILY FOR 1 DAY, ALTERNATING 3 WEEKS ON
     Route: 048
  5. LEVOXYL [Concomitant]
     Active Substance: LEVOTHYROXINE SODIUM
     Dosage: 100 MCG

REACTIONS (15)
  - Paraesthesia [None]
  - Retinal tear [None]
  - Hair texture abnormal [None]
  - Alopecia [None]
  - Neuropathy peripheral [None]
  - Vomiting [Recovering/Resolving]
  - Nausea [Recovering/Resolving]
  - Off label use [None]
  - Urticaria [Not Recovered/Not Resolved]
  - Retching [Recovering/Resolving]
  - Nausea [None]
  - Oral infection [None]
  - Pain [None]
  - Tongue discolouration [Not Recovered/Not Resolved]
  - Diarrhoea [Recovering/Resolving]

NARRATIVE: CASE EVENT DATE: 20201221
